FAERS Safety Report 10676245 (Version 1)
Quarter: 2014Q4

REPORT INFORMATION
  Report Type: Spontaneous
  Country: US (occurrence: US)
  Receive Date: 20141226
  Receipt Date: 20141226
  Transmission Date: 20150529
  Serious: Yes (Other)
  Sender: FDA-Public Use
  Company Number: US-AMGEN-USASP2014100557

PATIENT
  Age: 69 Year
  Sex: Female

DRUGS (1)
  1. PROLIA [Suspect]
     Active Substance: DENOSUMAB
     Indication: PRODUCT USED FOR UNKNOWN INDICATION
     Dosage: UNK
     Route: 065

REACTIONS (5)
  - Oesophageal oedema [Unknown]
  - Musculoskeletal chest pain [Unknown]
  - Hypoacusis [Unknown]
  - Pharyngeal inflammation [Unknown]
  - Rash generalised [Unknown]

NARRATIVE: CASE EVENT DATE: 201411
